FAERS Safety Report 21422932 (Version 1)
Quarter: 2022Q4

REPORT INFORMATION
  Report Type: Spontaneous
  Country: US (occurrence: None)
  Receive Date: 20221006
  Receipt Date: 20221006
  Transmission Date: 20230112
  Serious: Yes (Disabling)
  Sender: FDA-Public Use
  Company Number: None

PATIENT
  Age: 64 Year
  Sex: Female
  Weight: 62.1 kg

DRUGS (10)
  1. PRALUENT [Suspect]
     Active Substance: ALIROCUMAB
     Indication: Type IIa hyperlipidaemia
     Route: 030
     Dates: start: 20220101, end: 20221003
  2. METOPROLOL [Concomitant]
     Active Substance: METOPROLOL
  3. SERTRALINE [Concomitant]
     Active Substance: SERTRALINE HYDROCHLORIDE
  4. PLAVIX [Concomitant]
     Active Substance: CLOPIDOGREL BISULFATE
  5. DEVICE [Concomitant]
     Active Substance: DEVICE
  6. VITAMINS [Concomitant]
     Active Substance: VITAMINS
  7. VITAMIN B COMPLEX [Concomitant]
     Active Substance: CYANOCOBALAMIN\DEXPANTHENOL\NIACINAMIDE\PYRIDOXINE HYDROCHLORIDE\RIBOFLAVIN 5^-PHOSPHATE SODIUM\THIA
  8. VITAMIN D3 [Concomitant]
     Active Substance: CHOLECALCIFEROL
  9. CLARITIN [Concomitant]
     Active Substance: LORATADINE
  10. ASPIRIN [Concomitant]
     Active Substance: ASPIRIN

REACTIONS (11)
  - Fatigue [None]
  - Insomnia [None]
  - Paraesthesia [None]
  - Throat tightness [None]
  - Chest discomfort [None]
  - Muscle tightness [None]
  - Dyspnoea [None]
  - Memory impairment [None]
  - Palpitations [None]
  - Illness [None]
  - Insurance issue [None]
